FAERS Safety Report 8476617-4 (Version None)
Quarter: 2012Q2

REPORT INFORMATION
  Report Type: 
  Country: None (occurrence: None)
  Receive Date: 20120628
  Receipt Date: 20120625
  Transmission Date: 20120825
  Serious: Yes (Hospitalization)
  Sender: FDA-Public Use
  Company Number: IT-PFIZER INC-2012153017

PATIENT
  Age: 66 Year
  Sex: Female

DRUGS (7)
  1. NOZINAN [Suspect]
     Indication: MAJOR DEPRESSION
     Dosage: 50 MG, DAILY
     Route: 048
     Dates: start: 20110710, end: 20111022
  2. LANSOPRAZOLE [Concomitant]
  3. TRINIPLAS [Concomitant]
  4. ZYPREXA [Concomitant]
  5. XANAX [Suspect]
     Indication: MAJOR DEPRESSION
     Dosage: 0.25 MG, 1X/DAY
     Route: 048
     Dates: start: 20110715
  6. PROMAZINE HYDROCHLORIDE [Suspect]
     Indication: MAJOR DEPRESSION
     Dosage: 15 GTT, DAILY
     Route: 048
     Dates: start: 20110210
  7. LASIX [Concomitant]

REACTIONS (4)
  - SYNCOPE [None]
  - SOMNOLENCE [None]
  - SOPOR [None]
  - ASTHENIA [None]
